FAERS Safety Report 7931146-9 (Version None)
Quarter: 2011Q4

REPORT INFORMATION
  Report Type: 
  Country: None (occurrence: None)
  Receive Date: 20111121
  Receipt Date: 20111110
  Transmission Date: 20120403
  Serious: Yes (Hospitalization, Disabling)
  Sender: FDA-Public Use
  Company Number: US-MERCK-1102USA02324

PATIENT
  Age: 50 Year
  Sex: Female

DRUGS (4)
  1. FOSAMAX [Suspect]
     Indication: OSTEOPENIA
     Route: 048
     Dates: start: 20000101, end: 20100201
  2. FOSAMAX PLUS D [Suspect]
     Indication: OSTEOPENIA
     Route: 048
     Dates: start: 20000101, end: 20100201
  3. FOSAMAX [Suspect]
     Route: 048
  4. FOSAMAX [Suspect]
     Route: 048
     Dates: end: 20100201

REACTIONS (19)
  - UNEVALUABLE EVENT [None]
  - ANAEMIA [None]
  - BONE DENSITY DECREASED [None]
  - OSTEOPOROSIS [None]
  - CONTUSION [None]
  - DRUG INEFFECTIVE [None]
  - EMOTIONAL DISTRESS [None]
  - OVARIAN CYST [None]
  - MULTIPLE INJURIES [None]
  - FEMUR FRACTURE [None]
  - IMPAIRED HEALING [None]
  - ANXIETY [None]
  - BREAST CALCIFICATIONS [None]
  - FEAR [None]
  - ASTHENIA [None]
  - TOOTH DISORDER [None]
  - RIB FRACTURE [None]
  - STRESS FRACTURE [None]
  - FALL [None]
